FAERS Safety Report 4772856-4 (Version None)
Quarter: 2005Q3

REPORT INFORMATION
  Report Type: 
  Country: None (occurrence: None)
  Receive Date: 20050919
  Receipt Date: 20050609
  Transmission Date: 20060218
  Serious: Yes (Hospitalization)
  Sender: FDA-Public Use
  Company Number: US-MERCK-0506USA01480

PATIENT
  Age: 60 Year
  Sex: Male
  Weight: 82 kg

DRUGS (10)
  1. VIOXX [Suspect]
     Indication: ARTHRALGIA
     Route: 048
     Dates: start: 19991104, end: 20041006
  2. NEURONTIN [Concomitant]
     Indication: MUSCLE SPASMS
     Route: 048
     Dates: start: 19980609, end: 20041119
  3. NEURONTIN [Concomitant]
     Indication: PAIN
     Route: 048
     Dates: start: 19980609, end: 20041119
  4. PERCOCET [Concomitant]
     Indication: PAIN
     Route: 048
     Dates: start: 19980101, end: 20050423
  5. ENDOCET [Concomitant]
     Indication: PAIN
     Route: 048
     Dates: start: 19991225, end: 20031112
  6. XANAX [Concomitant]
     Indication: TREMOR
     Route: 048
  7. AMBIEN [Concomitant]
     Route: 048
  8. AFRIN [Suspect]
     Indication: DYSPNOEA
     Route: 055
  9. ACIPHEX [Concomitant]
     Route: 048
  10. FLEXERIL [Concomitant]
     Route: 048

REACTIONS (10)
  - DEEP VEIN THROMBOSIS [None]
  - GASTROOESOPHAGEAL REFLUX DISEASE [None]
  - GYNAECOMASTIA [None]
  - HAEMORRHOIDS [None]
  - HEPATIC CYST [None]
  - HYPERTENSION [None]
  - MICTURITION DISORDER [None]
  - NASAL CONGESTION [None]
  - PULMONARY EMBOLISM [None]
  - WEIGHT DECREASED [None]
